FAERS Safety Report 5446892-9 (Version None)
Quarter: 2007Q3

REPORT INFORMATION
  Report Type: 
  Country: None (occurrence: None)
  Receive Date: 20070802
  Receipt Date: 20070419
  Transmission Date: 20080115
  Serious: Yes (Hospitalization)
  Sender: FDA-Public Use
  Company Number: US-JNJFOC-20070404160

PATIENT
  Age: 34 Month
  Sex: Male
  Weight: 13.6079 kg

DRUGS (2)
  1. CHILDREN'S MOTRIN [Suspect]
     Indication: PHARYNGOLARYNGEAL PAIN
     Dosage: 100 MG, 3 IN 1 DAY
     Dates: start: 20070412, end: 20070413
  2. CHILDREN'S MOTRIN [Suspect]
     Indication: PYREXIA
     Dosage: 100 MG, 3 IN 1 DAY
     Dates: start: 20070412, end: 20070413

REACTIONS (1)
  - GASTRIC HAEMORRHAGE [None]
